FAERS Safety Report 16991898 (Version 1)
Quarter: 2019Q4

REPORT INFORMATION
  Report Type: Spontaneous
  Country: US (occurrence: US)
  Receive Date: 20190920
  Receipt Date: 20190920
  Transmission Date: 20200122
  Serious: Yes (Hospitalization)
  Sender: FDA-Public Use
  Company Number: None

PATIENT
  Age: 66 Year
  Sex: Male

DRUGS (2)
  1. APIXABAN [Suspect]
     Active Substance: APIXABAN
     Indication: ATRIAL FIBRILLATION
     Route: 048
     Dates: start: 20171021
  2. ASPIRIN. [Suspect]
     Active Substance: ASPIRIN
     Route: 048
     Dates: start: 20100310

REACTIONS (6)
  - Presyncope [None]
  - Haemorrhage [None]
  - Anaemia [None]
  - Gastrointestinal haemorrhage [None]
  - Occult blood positive [None]
  - Dizziness [None]

NARRATIVE: CASE EVENT DATE: 20190803
